FAERS Safety Report 4536793-2 (Version None)
Quarter: 2004Q4

REPORT INFORMATION
  Report Type: 
  Country: None (occurrence: None)
  Receive Date: 20041223
  Receipt Date: 20041216
  Transmission Date: 20050328
  Serious: Yes (Hospitalization)
  Sender: FDA-Public Use
  Company Number: US-ROCHE-389790

PATIENT
  Age: 50 Year
  Sex: Female

DRUGS (2)
  1. PEGASYS [Suspect]
     Indication: DRUG USE FOR UNKNOWN INDICATION
     Route: 058
     Dates: start: 20040731, end: 20041215
  2. COPEGUS [Suspect]
     Indication: DRUG USE FOR UNKNOWN INDICATION
     Route: 048
     Dates: start: 20040731, end: 20041215

REACTIONS (9)
  - ABDOMINAL PAIN [None]
  - CHOLELITHIASIS [None]
  - COLONIC OBSTRUCTION [None]
  - DIFFICULTY IN WALKING [None]
  - DIVERTICULITIS [None]
  - GASTROINTESTINAL INFECTION [None]
  - OEDEMA PERIPHERAL [None]
  - RASH [None]
  - RASH ERYTHEMATOUS [None]
